FAERS Safety Report 14020163 (Version 1)
Quarter: 2017Q3

REPORT INFORMATION
  Report Type: Other
  Country: FR (occurrence: FR)
  Receive Date: 20170928
  Receipt Date: 20170928
  Transmission Date: 20171128
  Serious: Yes (Hospitalization)
  Sender: FDA-Public Use
  Company Number: FR-ACORDA-ACO_142267_2017

PATIENT
  Age: 26 Year
  Sex: Male

DRUGS (4)
  1. LYRICA [Concomitant]
     Active Substance: PREGABALIN
     Indication: PRODUCT USED FOR UNKNOWN INDICATION
     Dosage: UNK
     Route: 065
  2. DOLIPRANE [Concomitant]
     Active Substance: ACETAMINOPHEN
     Indication: PRODUCT USED FOR UNKNOWN INDICATION
     Dosage: UNK
     Route: 065
  3. QUTENZA [Suspect]
     Active Substance: CAPSAICIN
     Indication: NEURALGIA
     Dosage: 1 PATCH, UNKNOWN FREQ.
     Route: 003
     Dates: start: 20170816, end: 20170816
  4. LAROXYL [Concomitant]
     Active Substance: AMITRIPTYLINE
     Indication: PRODUCT USED FOR UNKNOWN INDICATION
     Dosage: UNK
     Route: 065

REACTIONS (7)
  - Application site burn [Recovered/Resolved]
  - Application site hyperaesthesia [Unknown]
  - Malaise [Recovered/Resolved]
  - Application site erythema [Recovered/Resolved]
  - Skin fissures [Recovered/Resolved]
  - Application site pain [Recovered/Resolved]
  - Application site hypersensitivity [Unknown]

NARRATIVE: CASE EVENT DATE: 20170816
